FAERS Safety Report 16687970 (Version 2)
Quarter: 2019Q3

REPORT INFORMATION
  Report Type: Spontaneous
  Country: JP (occurrence: JP)
  Receive Date: 20190809
  Receipt Date: 20190816
  Transmission Date: 20191004
  Serious: Yes (Other)
  Sender: FDA-Public Use
  Company Number: JP-SAKK-2019SA215790AA

PATIENT
  Age: 64 Year
  Sex: Male

DRUGS (2)
  1. CISPLATIN. [Concomitant]
     Active Substance: CISPLATIN
     Indication: SQUAMOUS CELL CARCINOMA OF LUNG
     Dosage: 4 CYCLES
     Route: 065
  2. DOCETAXEL. [Suspect]
     Active Substance: DOCETAXEL
     Indication: SQUAMOUS CELL CARCINOMA OF LUNG
     Dosage: 4 CYCLES
     Route: 041

REACTIONS (5)
  - Bronchopulmonary aspergillosis [Recovering/Resolving]
  - Pyrexia [Recovering/Resolving]
  - Neutrophil count decreased [Unknown]
  - White blood cell count decreased [Unknown]
  - Febrile neutropenia [Unknown]
